FAERS Safety Report 4586180-6 (Version None)
Quarter: 2005Q1

REPORT INFORMATION
  Report Type: 
  Country: None (occurrence: None)
  Receive Date: 20050125
  Receipt Date: 20041119
  Transmission Date: 20050727
  Serious: No
  Sender: FDA-Public Use
  Company Number: US_0411107971

PATIENT
  Age: 69 Year
  Sex: Female
  Weight: 59 kg

DRUGS (8)
  1. FORTEO [Suspect]
     Indication: OSTEOPOROSIS
     Dosage: 20 UG/1 DAY
     Dates: start: 20040803
  2. ATIVAN [Concomitant]
  3. COUMADIN [Concomitant]
  4. ZOCOR (SIMVASTATIN RATIOPHARM) [Concomitant]
  5. CALCIUM WITH VITAMIN D [Concomitant]
  6. ACTONEL [Concomitant]
  7. CALCIUM/MAGNESIUM/ZINC [Concomitant]
  8. MULTI-VITAMIN [Concomitant]

REACTIONS (5)
  - BOWEL SOUNDS ABNORMAL [None]
  - ERUCTATION [None]
  - FLATULENCE [None]
  - NAUSEA [None]
  - STOMACH DISCOMFORT [None]
